FAERS Safety Report 18496498 (Version 3)
Quarter: 2021Q1

REPORT INFORMATION
  Report Type: Spontaneous
  Country: US (occurrence: US)
  Receive Date: 20201112
  Receipt Date: 20210115
  Transmission Date: 20210419
  Serious: No
  Sender: FDA-Public Use
  Company Number: US-PFIZER INC-2020437295

PATIENT
  Age: 10 Year
  Sex: Female

DRUGS (1)
  1. GENOTROPIN [Suspect]
     Active Substance: SOMATROPIN
     Dosage: 0.9 MG, UNK
     Dates: start: 202009

REACTIONS (3)
  - Device environmental compatibility issue [Unknown]
  - Drug dose omission by device [Unknown]
  - Product storage error [Unknown]

NARRATIVE: CASE EVENT DATE: 2020
